FAERS Safety Report 7386433-2 (Version None)
Quarter: 2011Q1

REPORT INFORMATION
  Report Type: 
  Country: None (occurrence: None)
  Receive Date: 20110331
  Receipt Date: 20110325
  Transmission Date: 20110831
  Serious: Yes (Life-Threatening, Other)
  Sender: FDA-Public Use
  Company Number: PHHY2011CA24791

PATIENT
  Sex: Female

DRUGS (1)
  1. ACLASTA [Suspect]
     Indication: OSTEOPOROSIS
     Dosage: 5 MG,
     Route: 042
     Dates: start: 20100513

REACTIONS (5)
  - FEELING ABNORMAL [None]
  - AMNESIA [None]
  - EMOTIONAL DISTRESS [None]
  - MANIA [None]
  - INCOHERENT [None]
